FAERS Safety Report 6363452-6 (Version None)
Quarter: 2009Q3

REPORT INFORMATION
  Report Type: 
  Country: None (occurrence: None)
  Receive Date: 20090919
  Receipt Date: 20090626
  Transmission Date: 20100115
  Serious: No
  Sender: FDA-Public Use
  Company Number: US-ABBOTT-09P-163-0582617-00

PATIENT
  Sex: Female
  Weight: 48.124 kg

DRUGS (7)
  1. HUMIRA [Suspect]
     Indication: RHEUMATOID ARTHRITIS
     Route: 058
     Dates: start: 20080101
  2. HUMIRA [Suspect]
     Route: 058
  3. NEXIUM [Concomitant]
     Indication: DRUG USE FOR UNKNOWN INDICATION
  4. PREDNISONE [Concomitant]
     Indication: DRUG USE FOR UNKNOWN INDICATION
     Dosage: 1-2 - 2.5 MG TABS DAILY
  5. BENICAR [Concomitant]
     Indication: BLOOD PRESSURE
     Dosage: 1 - 20/12.5 TAB DAILY
  6. CARAFATE [Concomitant]
     Indication: DRUG USE FOR UNKNOWN INDICATION
  7. DESVENLAFAXINE [Concomitant]
     Indication: DEPRESSION

REACTIONS (3)
  - NASOPHARYNGITIS [None]
  - THERAPEUTIC RESPONSE DECREASED [None]
  - VIRAL INFECTION [None]
